FAERS Safety Report 4999897-6 (Version None)
Quarter: 2006Q2

REPORT INFORMATION
  Report Type: 
  Country: None (occurrence: None)
  Receive Date: 20060509
  Receipt Date: 20060425
  Transmission Date: 20061013
  Serious: Yes (Hospitalization)
  Sender: FDA-Public Use
  Company Number: DE200601004935

PATIENT
  Age: 56 Year
  Sex: Female
  Weight: 61 kg

DRUGS (2)
  1. YENTREVE (DULOXETINE HYDROCHLORIDE) CAPSULE [Suspect]
     Indication: STRESS INCONTINENCE
     Dosage: 40 MG, 2/D, ORAL; SEE IMAGE
     Route: 048
     Dates: start: 20050715, end: 20051222
  2. GYNOKADIN GEL (ESTRADIOL) [Concomitant]

REACTIONS (7)
  - CAROTID INTIMA-MEDIA THICKNESS INCREASED [None]
  - DIARRHOEA [None]
  - DIZZINESS [None]
  - FALL [None]
  - ORTHOSTATIC INTOLERANCE [None]
  - RADIUS FRACTURE [None]
  - SYNCOPE [None]
